FAERS Safety Report 23232401 (Version 1)
Quarter: 2023Q4

REPORT INFORMATION
  Report Type: Report from Study
  Country: US (occurrence: US)
  Receive Date: 20231128
  Receipt Date: 20231128
  Transmission Date: 20240109
  Serious: Yes (Hospitalization, Other)
  Sender: FDA-Public Use
  Company Number: US-ABBVIE-5515873

PATIENT
  Age: 82 Year
  Sex: Female

DRUGS (1)
  1. HUMIRA [Suspect]
     Active Substance: ADALIMUMAB
     Indication: Product used for unknown indication
     Route: 058

REACTIONS (6)
  - Cardiac failure [Unknown]
  - Crohn^s disease [Unknown]
  - Diastolic dysfunction [Unknown]
  - Pasteurella infection [Unknown]
  - Ejection fraction abnormal [Unknown]
  - Atrial fibrillation [Unknown]
